FAERS Safety Report 12897571 (Version 1)
Quarter: 2016Q4

REPORT INFORMATION
  Report Type: Spontaneous
  Country: GB (occurrence: GB)
  Receive Date: 20161031
  Receipt Date: 20161031
  Transmission Date: 20170207
  Serious: Yes (Hospitalization)
  Sender: FDA-Public Use
  Company Number: GB-SA-2016SA192396

PATIENT
  Age: 48 Year
  Sex: Male

DRUGS (2)
  1. ALEMTUZUMAB [Suspect]
     Active Substance: ALEMTUZUMAB
     Indication: MULTIPLE SCLEROSIS
     Dosage: DOSE- 60 MG OVER 5 DAYS
     Route: 042
     Dates: start: 20160919, end: 20160923
  2. METHYLPREDNISOLONE. [Suspect]
     Active Substance: METHYLPREDNISOLONE
     Indication: PREMEDICATION
     Route: 042
     Dates: start: 20160919, end: 20160923

REACTIONS (7)
  - Pyrexia [Recovered/Resolved]
  - C-reactive protein increased [Unknown]
  - Lymphopenia [Unknown]
  - Blood glucose increased [Recovered/Resolved]
  - Malaise [Unknown]
  - Infection [Recovered/Resolved]
  - Hyperglycaemia [Recovered/Resolved]

NARRATIVE: CASE EVENT DATE: 20160920
